FAERS Safety Report 23242334 (Version 1)
Quarter: 2023Q4

REPORT INFORMATION
  Report Type: Spontaneous
  Country: US (occurrence: US)
  Receive Date: 20231129
  Receipt Date: 20231129
  Transmission Date: 20240109
  Serious: No
  Sender: FDA-Public Use
  Company Number: US-MYLANLABS-2023M1125236

PATIENT
  Sex: Male
  Weight: 72.57 kg

DRUGS (2)
  1. ZOLOFT [Suspect]
     Active Substance: SERTRALINE HYDROCHLORIDE
     Indication: Anxiety
     Dosage: UNK
     Route: 065
     Dates: end: 202301
  2. ZOLOFT [Suspect]
     Active Substance: SERTRALINE HYDROCHLORIDE
     Indication: Depression

REACTIONS (7)
  - Crying [Unknown]
  - Anger [Unknown]
  - Frustration tolerance decreased [Unknown]
  - Fear [Unknown]
  - Dizziness [Unknown]
  - Sleep disorder [Unknown]
  - Personality disorder [Unknown]
